FAERS Safety Report 16005795 (Version 1)
Quarter: 2019Q1

REPORT INFORMATION
  Report Type: Report from Study
  Country: None (occurrence: NL)
  Receive Date: 20190226
  Receipt Date: 20190226
  Transmission Date: 20190418
  Serious: Yes (Other)
  Sender: FDA-Public Use
  Company Number: NL-ABBVIE-18S-114-2555740-00

PATIENT
  Sex: Male

DRUGS (4)
  1. DUODOPA [Suspect]
     Active Substance: CARBIDOPA\LEVODOPA
     Indication: PARKINSON^S DISEASE
     Dosage: MD: 11.8, CD: 3.2, ED: 3, CND: 2.8
     Route: 050
     Dates: start: 20180806, end: 2018
  2. DUODOPA [Suspect]
     Active Substance: CARBIDOPA\LEVODOPA
     Dosage: MD: 11.8, CD: 3.4, ED: 3, CND: 2.8
     Route: 050
     Dates: start: 2018
  3. DUODOPA [Suspect]
     Active Substance: CARBIDOPA\LEVODOPA
     Dosage: MD: 12.0
     Route: 050
     Dates: start: 2018
  4. MORPHINE [Suspect]
     Active Substance: MORPHINE
     Indication: PAIN
     Route: 065

REACTIONS (8)
  - Ill-defined disorder [Not Recovered/Not Resolved]
  - Fall [Recovered/Resolved]
  - Pain [Unknown]
  - Gait disturbance [Unknown]
  - Drug effect decreased [Not Recovered/Not Resolved]
  - Dyschezia [Unknown]
  - Dysuria [Unknown]
  - Tremor [Not Recovered/Not Resolved]

NARRATIVE: CASE EVENT DATE: 2018
